FAERS Safety Report 6202594-2 (Version None)
Quarter: 2009Q2

REPORT INFORMATION
  Report Type: 
  Country: None (occurrence: None)
  Receive Date: 20090526
  Receipt Date: 20090515
  Transmission Date: 20091009
  Serious: Yes (Hospitalization, Other)
  Sender: FDA-Public Use
  Company Number: ZA-MEDIMMUNE-MEDI-0008403

PATIENT
  Age: 7 Month
  Sex: Female

DRUGS (2)
  1. SYNAGIS [Suspect]
     Dates: start: 20090301, end: 20090301
  2. SYNAGIS [Suspect]
     Dates: start: 20090401

REACTIONS (2)
  - BRONCHIOLITIS [None]
  - RESPIRATORY SYNCYTIAL VIRUS INFECTION [None]
